FAERS Safety Report 4458507-7 (Version None)
Quarter: 2004Q3

REPORT INFORMATION
  Report Type: 
  Country: None (occurrence: None)
  Receive Date: 20040922
  Receipt Date: 20030731
  Transmission Date: 20050211
  Serious: Yes (Hospitalization)
  Sender: FDA-Public Use
  Company Number: US-SHR-03-006739

PATIENT
  Age: 58 Year
  Sex: Female
  Weight: 59.9 kg

DRUGS (7)
  1. BETASERON [Suspect]
     Indication: MULTIPLE SCLEROSIS
     Dosage: 8 MIU, EVERY 2D, SUBCUTANEOUS
     Route: 058
     Dates: start: 20020816, end: 20030419
  2. BACLOFEN [Concomitant]
  3. AMITRIPTYLINE HCL [Concomitant]
  4. PROVIGIL [Concomitant]
  5. FAMOTIDINE [Concomitant]
  6. VICOPROFEN [Concomitant]
  7. TYLENOL [Concomitant]

REACTIONS (3)
  - DIFFICULTY IN WALKING [None]
  - INFLUENZA LIKE ILLNESS [None]
  - PARANOIA [None]
